FAERS Safety Report 9116376 (Version 2)
Quarter: 2013Q1

REPORT INFORMATION
  Report Type: Report from Study
  Country: US (occurrence: US)
  Receive Date: 20130225
  Receipt Date: 20130318
  Transmission Date: 20140127
  Serious: Yes (Death)
  Sender: FDA-Public Use
  Company Number: US-ACTELION-A-US2013-79622

PATIENT
  Age: 84 Year
  Sex: Female

DRUGS (3)
  1. TRACLEER [Suspect]
     Indication: PULMONARY ARTERIAL HYPERTENSION
     Dosage: UNK
     Route: 048
     Dates: start: 20110106, end: 20130213
  2. TYVASO [Concomitant]
  3. ADCIRCA [Concomitant]

REACTIONS (4)
  - Pneumonia [Fatal]
  - Cardiac failure [Fatal]
  - Pulmonary arterial hypertension [Fatal]
  - Disease complication [Fatal]
